FAERS Safety Report 8497188-2 (Version None)
Quarter: 2012Q3

REPORT INFORMATION
  Report Type: 
  Country: None (occurrence: None)
  Receive Date: 20120709
  Receipt Date: 20120601
  Transmission Date: 20120928
  Serious: No
  Sender: FDA-Public Use
  Company Number: US-AMGEN-USASP2012034919

PATIENT
  Age: 27 Year
  Sex: Female

DRUGS (3)
  1. SULFASALAZINE [Concomitant]
     Dosage: 2 MG, UNK
  2. ENBREL [Suspect]
     Indication: ANKYLOSING SPONDYLITIS
     Dosage: 50 MG, QWK
     Dates: start: 20120101
  3. CELEBREX [Concomitant]
     Dosage: 1 MG, UNK

REACTIONS (2)
  - MALAISE [None]
  - PYREXIA [None]
